FAERS Safety Report 4743796-1 (Version None)
Quarter: 2005Q3

REPORT INFORMATION
  Report Type: 
  Country: None (occurrence: None)
  Receive Date: 20050809
  Receipt Date: 20050727
  Transmission Date: 20060218
  Serious: Yes (Death)
  Sender: FDA-Public Use
  Company Number: 2005FR-00153

PATIENT
  Age: 1 Month
  Sex: Female
  Weight: 1 kg

DRUGS (8)
  1. ASPIRIN [Suspect]
     Dosage: 120 MG, BD, ORAL
     Route: 048
     Dates: start: 20041201
  2. CYTARABINE [Concomitant]
  3. FLUDARABINE PHOSPHATE [Concomitant]
  4. FLUCLOXACILLIN [Concomitant]
  5. GENTAMICIN [Concomitant]
  6. CODEINE [Concomitant]
  7. ALLOPURINOL [Concomitant]
  8. CEFTRIAXONE [Concomitant]

REACTIONS (1)
  - TOXIC EPIDERMAL NECROLYSIS [None]
